APPROVED DRUG PRODUCT: PSEUDOEPHEDRINE HYDROCHLORIDE AND TRIPROLIDINE HYDROCHLORIDE
Active Ingredient: PSEUDOEPHEDRINE HYDROCHLORIDE; TRIPROLIDINE HYDROCHLORIDE
Strength: 60MG;2.5MG
Dosage Form/Route: TABLET;ORAL
Application: A088193 | Product #001
Applicant: SANDOZ INC
Approved: May 17, 1983 | RLD: No | RS: No | Type: DISCN